FAERS Safety Report 5739128-2 (Version None)
Quarter: 2008Q2

REPORT INFORMATION
  Report Type: 
  Country: None (occurrence: None)
  Receive Date: 20080515
  Receipt Date: 20080508
  Transmission Date: 20081010
  Serious: Yes (Hospitalization)
  Sender: FDA-Public Use
  Company Number: A0723281A

PATIENT
  Age: 76 Year
  Sex: Male
  Weight: 71.8 kg

DRUGS (4)
  1. ADVAIR DISKUS 100/50 [Suspect]
     Indication: CHRONIC OBSTRUCTIVE PULMONARY DISEASE
     Dosage: 1PUFF TWICE PER DAY
     Route: 055
     Dates: start: 20071001
  2. SPIRIVA [Concomitant]
     Dosage: 18MCG PER DAY
  3. NORVASC [Concomitant]
     Dosage: 5MG PER DAY
     Route: 048
  4. SALBUTAMOL [Concomitant]
     Dosage: 200MCG FOUR TIMES PER DAY
     Route: 055

REACTIONS (3)
  - ANGINA PECTORIS [None]
  - DYSGEUSIA [None]
  - PHARMACEUTICAL PRODUCT COMPLAINT [None]
